FAERS Safety Report 24981700 (Version 1)
Quarter: 2025Q1

REPORT INFORMATION
  Report Type: Spontaneous
  Country: US (occurrence: None)
  Receive Date: 20250217
  Receipt Date: 20250217
  Transmission Date: 20250409
  Serious: Yes (Other)
  Sender: FDA-CTU
  Company Number: None

PATIENT
  Age: 17 Year
  Sex: Female
  Weight: 39.9 kg

DRUGS (4)
  1. SULFAMETHOXAZOLE\TRIMETHOPRIM [Suspect]
     Active Substance: SULFAMETHOXAZOLE\TRIMETHOPRIM
     Indication: Urinary tract infection
     Dosage: FREQUENCY : TWICE A DAY;?
     Route: 048
     Dates: start: 20250208, end: 20250215
  2. ESCITALOPRAM [Concomitant]
     Active Substance: ESCITALOPRAM OXALATE
     Dates: start: 20250210
  3. Guanfacine 1 mg [Concomitant]
     Dates: start: 20250214
  4. QUETIAPINE [Concomitant]
     Active Substance: QUETIAPINE
     Dates: start: 20250205

REACTIONS (6)
  - Rash [None]
  - Pruritus [None]
  - Erythema [None]
  - Swelling face [None]
  - Therapy cessation [None]
  - Drug hypersensitivity [None]

NARRATIVE: CASE EVENT DATE: 20250216
